FAERS Safety Report 8584629 (Version 2)
Quarter: 2014Q1

REPORT INFORMATION
  Report Type: Spontaneous
  Country: US (occurrence: None)
  Receive Date: 20120323
  Receipt Date: 20140306
  Transmission Date: 20141002
  Serious: Yes (Hospitalization)
  Sender: FDA-Public Use
  Company Number: 163-21880-11032418

PATIENT
  Age: 70 Year
  Sex: Female
  Weight: 54.43 kg

DRUGS (7)
  1. REVLIMID [Suspect]
     Indication: PLASMA CELL MYELOMA
     Dosage: 10 MG, 1 IN 1 D, PO 5 MG, QOD X 3WKS ON, 1WK OFF, PO
     Route: 048
     Dates: start: 200811
  2. AMLODIPINE [Concomitant]
  3. CARVEDILOL (CARVEDILOL) [Concomitant]
  4. DECADRON [Concomitant]
  5. LYRICA [Concomitant]
  6. VALTREX [Concomitant]
  7. MAGNESIUM (MAGNESIUM) [Concomitant]

REACTIONS (2)
  - Dyspnoea [None]
  - Diarrhoea [None]
